FAERS Safety Report 24815329 (Version 1)
Quarter: 2025Q1

REPORT INFORMATION
  Report Type: Spontaneous
  Country: US (occurrence: US)
  Receive Date: 20250107
  Receipt Date: 20250107
  Transmission Date: 20250409
  Serious: Yes (Other)
  Sender: MYLAN
  Company Number: US-MYLANLABS-2025M1000904

PATIENT
  Age: 62 Year
  Sex: Female

DRUGS (2)
  1. LYRICA [Suspect]
     Active Substance: PREGABALIN
     Indication: Product used for unknown indication
     Route: 065
  2. XANAX [Suspect]
     Active Substance: ALPRAZOLAM
     Indication: Product used for unknown indication
     Route: 065

REACTIONS (11)
  - Rheumatoid arthritis [Unknown]
  - Systemic lupus erythematosus [Unknown]
  - Sjogren^s syndrome [Unknown]
  - Road traffic accident [Unknown]
  - Posture abnormal [Unknown]
  - Head titubation [Unknown]
  - Fatigue [Unknown]
  - Pain [Unknown]
  - Anxiety [Unknown]
  - Memory impairment [Unknown]
  - Product prescribing issue [Unknown]
